FAERS Safety Report 8429304-2 (Version None)
Quarter: 2012Q2

REPORT INFORMATION
  Report Type: 
  Country: None (occurrence: None)
  Receive Date: 20120612
  Receipt Date: 20120606
  Transmission Date: 20120825
  Serious: Yes (Other)
  Sender: FDA-Public Use
  Company Number: PHHY2012DK048866

PATIENT
  Sex: Male
  Weight: 80 kg

DRUGS (9)
  1. DENOSUMAB [Concomitant]
     Indication: METASTASES TO BONE
     Dosage: 120 MG
     Route: 058
     Dates: start: 20111114, end: 20120208
  2. FLUOXETINE HCL [Concomitant]
     Dates: start: 20061012
  3. CALCIUM CITRATE W/COLECALCIFEROL [Concomitant]
     Indication: PROPHYLAXIS
     Dates: start: 20061001
  4. GABAPENTIN [Concomitant]
     Indication: PAIN
     Dates: start: 20110629
  5. ZOMETA [Suspect]
     Indication: OSTEOPOROSIS
     Dosage: 4 MG/5 ML EVERY 4 WEEKS
     Route: 042
     Dates: start: 20090107, end: 20111114
  6. CENTYL MED KALIUMKLORID [Concomitant]
     Indication: HYPERTENSION
  7. PREDNISOLONE [Concomitant]
     Indication: ASTHMA
     Dates: start: 20061009
  8. ZOMETA [Suspect]
     Indication: METASTASES TO BONE
     Dosage: 4 MG/5 ML EVERY 4 WEEKS
     Route: 042
     Dates: start: 20120514
  9. MORPHINE SULFATE [Concomitant]
     Indication: PAIN
     Dates: start: 20070623

REACTIONS (4)
  - GINGIVAL SWELLING [None]
  - OSTEONECROSIS OF JAW [None]
  - PAIN [None]
  - HYPOAESTHESIA ORAL [None]
